FAERS Safety Report 22255784 (Version 1)
Quarter: 2023Q2

REPORT INFORMATION
  Report Type: Spontaneous
  Country: US (occurrence: US)
  Receive Date: 20230426
  Receipt Date: 20230426
  Transmission Date: 20230722
  Serious: No
  Sender: FDA-Public Use
  Company Number: US-BRISTOL-MYERS SQUIBB COMPANY-2023-059595

PATIENT
  Age: 67 Year
  Sex: Male

DRUGS (1)
  1. IDHIFA [Suspect]
     Active Substance: ENASIDENIB MESYLATE
     Indication: Acute myeloid leukaemia
     Dates: start: 20230309

REACTIONS (5)
  - Blood uric acid increased [Unknown]
  - Gout [Unknown]
  - Pain [Unknown]
  - Fatigue [Unknown]
  - Taste disorder [Unknown]
